FAERS Safety Report 5828964-X (Version None)
Quarter: 2008Q3

REPORT INFORMATION
  Report Type: 
  Country: None (occurrence: None)
  Receive Date: 20080731
  Receipt Date: 20071130
  Transmission Date: 20090109
  Serious: Yes (Other)
  Sender: FDA-Public Use
  Company Number: US-RANBAXY-2007US-16571

PATIENT

DRUGS (5)
  1. ISOTRETINOIN [Suspect]
     Indication: ACNE
     Dosage: UNK
     Dates: start: 20040609, end: 20040709
  2. CLARAVIS [Suspect]
     Indication: ACNE
     Dosage: UNK
     Dates: start: 20040413, end: 20040611
  3. CLARAVIS [Suspect]
     Dosage: UNK
     Dates: start: 20040709, end: 20040808
  4. IBUPROFEN [Concomitant]
     Dosage: UNK
  5. ALEVE [Concomitant]
     Dosage: UNK

REACTIONS (33)
  - ABDOMINAL PAIN [None]
  - ANAEMIA [None]
  - ANOREXIA [None]
  - ANXIETY [None]
  - ARTHRALGIA [None]
  - BACK PAIN [None]
  - CROHN'S DISEASE [None]
  - DECREASED APPETITE [None]
  - DECREASED INTEREST [None]
  - DEPRESSED MOOD [None]
  - DISTRACTIBILITY [None]
  - DISTURBANCE IN ATTENTION [None]
  - FATIGUE [None]
  - FEAR [None]
  - FEELINGS OF WORTHLESSNESS [None]
  - FLAT AFFECT [None]
  - GASTROINTESTINAL DISORDER [None]
  - HAEMATOCHEZIA [None]
  - INCREASED APPETITE [None]
  - INFLAMMATORY BOWEL DISEASE [None]
  - INSOMNIA [None]
  - IRRITABILITY [None]
  - NAUSEA [None]
  - OEDEMA [None]
  - PANIC ATTACK [None]
  - RECTAL HAEMORRHAGE [None]
  - RESTLESSNESS [None]
  - SLEEP DISORDER [None]
  - SUICIDAL IDEATION [None]
  - SUICIDE ATTEMPT [None]
  - SWELLING [None]
  - VOMITING [None]
  - WEIGHT DECREASED [None]
